FAERS Safety Report 9159509 (Version 1)
Quarter: 2013Q1

REPORT INFORMATION
  Report Type: Spontaneous
  Country: IT (occurrence: None)
  Receive Date: 20130219
  Receipt Date: 20130219
  Transmission Date: 20140127
  Serious: Yes (Hospitalization, Other)
  Sender: FDA-Public Use
  Company Number: 2013P002032

PATIENT
  Age: 40 Year
  Sex: Female

DRUGS (5)
  1. LAMOTRIGINE [Suspect]
     Dates: start: 2008
  2. ARIPIPRAZOLE [Suspect]
     Dates: start: 2008
  3. ZUCLOPENTHIXOL [Suspect]
     Route: 030
     Dates: start: 200912
  4. CLOTIAPINE [Suspect]
     Route: 030
     Dates: start: 200912
  5. LORAZEPAM [Concomitant]

REACTIONS (1)
  - Neuroleptic malignant syndrome [None]
